FAERS Safety Report 4863453-0 (Version None)
Quarter: 2005Q4

REPORT INFORMATION
  Report Type: 
  Country: None (occurrence: None)
  Receive Date: 20051222
  Receipt Date: 20050207
  Transmission Date: 20060501
  Serious: No
  Sender: FDA-Public Use
  Company Number: US-GLAXOSMITHKLINE-A0544261A

PATIENT
  Age: 48 Year
  Sex: Male

DRUGS (3)
  1. FLONASE [Suspect]
     Indication: BRONCHITIS
     Dosage: 1SPR TWICE PER DAY
     Route: 045
  2. VENTOLIN [Concomitant]
  3. ADVAIR DISKUS 250/50 [Concomitant]

REACTIONS (4)
  - DRUG ADMINISTRATION ERROR [None]
  - PHARMACEUTICAL PRODUCT COMPLAINT [None]
  - RHINORRHOEA [None]
  - UPPER RESPIRATORY TRACT INFECTION [None]
